FAERS Safety Report 4396059-0 (Version None)
Quarter: 2004Q3

REPORT INFORMATION
  Report Type: 
  Country: None (occurrence: None)
  Receive Date: 20040707
  Receipt Date: 20040621
  Transmission Date: 20050211
  Serious: Yes (Other)
  Sender: FDA-Public Use
  Company Number: GB-JNJFOC-20040605201

PATIENT
  Age: 38 Year
  Sex: Male

DRUGS (1)
  1. ULTRAM [Suspect]
     Indication: ARTHRALGIA
     Dosage: 1 IN 1 DAY,ORAL
     Route: 048

REACTIONS (4)
  - ABNORMAL DREAMS [None]
  - FEAR [None]
  - INSOMNIA [None]
  - PARANOIA [None]
